FAERS Safety Report 4462665-8 (Version None)
Quarter: 2004Q3

REPORT INFORMATION
  Report Type: 
  Country: None (occurrence: None)
  Receive Date: 20040927
  Receipt Date: 20040927
  Transmission Date: 20050211
  Serious: No
  Sender: FDA-Public Use
  Company Number: None

PATIENT

DRUGS (2)
  1. TUBERSOL [Suspect]
     Indication: SKIN TEST
     Dosage: .1 ML SQ
     Route: 058
  2. TUBERSOL [Suspect]
     Indication: TUBERCULIN TEST
     Dosage: .1 ML SQ
     Route: 058

REACTIONS (2)
  - INJECTION SITE ERYTHEMA [None]
  - INJECTION SITE PAIN [None]
